FAERS Safety Report 9222359 (Version 1)
Quarter: 2013Q2

REPORT INFORMATION
  Report Type: Spontaneous
  Country: BE (occurrence: BE)
  Receive Date: 20130410
  Receipt Date: 20130410
  Transmission Date: 20140414
  Serious: Yes (Death, Life-Threatening)
  Sender: FDA-Public Use
  Company Number: BE-ROXANE LABORATORIES, INC.-2013-RO-00459RO

PATIENT
  Age: 65 Year
  Sex: Female

DRUGS (2)
  1. LORAZEPAM [Suspect]
     Dosage: 40 MG
  2. VENLAFAXINE [Suspect]
     Dosage: 7000 MG

REACTIONS (3)
  - Cardiogenic shock [Fatal]
  - Cardiotoxicity [Unknown]
  - Cardiac failure acute [Unknown]
